FAERS Safety Report 18521973 (Version 1)
Quarter: 2020Q4

REPORT INFORMATION
  Report Type: Spontaneous
  Country: US (occurrence: US)
  Receive Date: 20201119
  Receipt Date: 20201119
  Transmission Date: 20210114
  Serious: No
  Sender: FDA-Public Use
  Company Number: US-IMMUNOMEDICS, INC.-2020IMMU000494

PATIENT

DRUGS (1)
  1. TRODELVY [Suspect]
     Active Substance: SACITUZUMAB GOVITECAN-HZIY
     Indication: TRIPLE NEGATIVE BREAST CANCER
     Dosage: 180 MG
     Route: 065
     Dates: start: 20200728, end: 20200728

REACTIONS (1)
  - Product administration error [Unknown]
